FAERS Safety Report 23197876 (Version 1)
Quarter: 2023Q4

REPORT INFORMATION
  Report Type: Spontaneous
  Country: US (occurrence: None)
  Receive Date: 20231117
  Receipt Date: 20231117
  Transmission Date: 20240110
  Serious: No
  Sender: FDA-Public Use
  Company Number: None

PATIENT
  Age: 28 Year
  Sex: Male
  Weight: 108 kg

DRUGS (11)
  1. HIZENTRA [Suspect]
     Active Substance: HUMAN IMMUNOGLOBULIN G
     Indication: Dermatomyositis
     Dosage: OTHER FREQUENCY : WEEKLY;?
     Route: 058
  2. Acetaminophen 650mg [Concomitant]
     Dates: start: 20230202
  3. DIPHENHYDRAMINE [Concomitant]
     Active Substance: DIPHENHYDRAMINE
     Dates: start: 20230202
  4. Hydroxychloroquine200mg [Concomitant]
     Dates: start: 20220930
  5. Valacyclovir 1000mg [Concomitant]
     Dates: start: 20220919
  6. PANTOPRAZOLE SODIUM [Concomitant]
     Active Substance: PANTOPRAZOLE SODIUM
     Dates: start: 20220919
  7. ONDANSETRON [Concomitant]
     Active Substance: ONDANSETRON
     Dates: start: 20220919
  8. DICLOFENAC [Concomitant]
     Active Substance: DICLOFENAC
     Dates: start: 20220919
  9. AZATHIOPRINE [Concomitant]
     Active Substance: AZATHIOPRINE
     Dates: start: 20220919
  10. CLINDAMYCIN [Concomitant]
     Active Substance: CLINDAMYCIN
     Dates: start: 2023, end: 20231105
  11. BACTRIM DS [Concomitant]
     Active Substance: SULFAMETHOXAZOLE\TRIMETHOPRIM
     Dates: start: 2023

REACTIONS (3)
  - Injection site reaction [None]
  - Cellulitis [None]
  - Abscess limb [None]

NARRATIVE: CASE EVENT DATE: 20231030
